FAERS Safety Report 11413783 (Version 2)
Quarter: 2015Q4

REPORT INFORMATION
  Report Type: Spontaneous
  Country: US (occurrence: US)
  Receive Date: 20150824
  Receipt Date: 20151203
  Transmission Date: 20160304
  Serious: Yes (Hospitalization)
  Sender: FDA-Public Use
  Company Number: US-BAYER-2015-406215

PATIENT
  Age: 34 Year
  Sex: Female
  Weight: 54.42 kg

DRUGS (4)
  1. MIRENA [Suspect]
     Active Substance: LEVONORGESTREL
     Indication: CONTRACEPTION
     Dosage: 20 MCG/24HR, CONT
     Route: 015
     Dates: start: 20130212, end: 20141117
  2. CANASA [Concomitant]
     Active Substance: MESALAMINE
     Indication: COLITIS ULCERATIVE
     Dosage: UNK
     Dates: start: 2010, end: 2014
  3. LIALDA [Concomitant]
     Active Substance: MESALAMINE
     Indication: COLITIS
     Dosage: UNK
     Dates: start: 20101207
  4. ZOFRAN [Concomitant]
     Active Substance: ONDANSETRON HYDROCHLORIDE

REACTIONS (10)
  - Genital haemorrhage [None]
  - Pelvic pain [None]
  - Emotional distress [None]
  - Injury [None]
  - Device breakage [None]
  - Abdominal pain lower [None]
  - Scar [None]
  - Uterine perforation [None]
  - Mood swings [None]
  - Device difficult to use [None]

NARRATIVE: CASE EVENT DATE: 201411
